FAERS Safety Report 6328379-4 (Version None)
Quarter: 2009Q3

REPORT INFORMATION
  Report Type: 
  Country: None (occurrence: None)
  Receive Date: 20090825
  Receipt Date: 20090311
  Transmission Date: 20100115
  Serious: No
  Sender: FDA-Public Use
  Company Number: US-ABBOTT-09P-163-0561993-00

PATIENT
  Age: 22 Year
  Sex: Female

DRUGS (5)
  1. SYNTHROID [Suspect]
     Indication: THYROIDECTOMY
     Route: 048
     Dates: start: 20090304
  2. SYNTHROID [Suspect]
     Dates: end: 20090303
  3. CYTOMEL [Concomitant]
     Indication: BLOOD THYROID STIMULATING HORMONE INCREASED
     Dosage: 50 TO 75 MILLIGRAMS
  4. ORAL CONTACEPTIVES [Concomitant]
     Indication: DRUG USE FOR UNKNOWN INDICATION
  5. PAIN MEDICATION [Concomitant]
     Indication: DRUG USE FOR UNKNOWN INDICATION

REACTIONS (1)
  - BLOOD THYROID STIMULATING HORMONE INCREASED [None]
